FAERS Safety Report 7247689-X (Version None)
Quarter: 2011Q1

REPORT INFORMATION
  Report Type: 
  Country: None (occurrence: None)
  Receive Date: 20110127
  Receipt Date: 20110117
  Transmission Date: 20110831
  Serious: Yes (Other)
  Sender: FDA-Public Use
  Company Number: JP-JNJFOC-20101104202

PATIENT
  Sex: Male

DRUGS (6)
  1. FINIBAX [Suspect]
     Indication: URINARY TRACT INFECTION
     Route: 041
  2. VOLTAREN [Concomitant]
     Indication: PYREXIA
  3. VITAMEDIN [Concomitant]
     Indication: VITAMIN SUPPLEMENTATION
  4. GASTER [Concomitant]
     Indication: GASTRITIS PROPHYLAXIS
     Route: 042
  5. TPN ELECTROLYTES IN PLASTIC CONTAINER [Concomitant]
     Indication: FLUID REPLACEMENT
     Route: 041
  6. SOLITA-T1 [Concomitant]
     Indication: FLUID REPLACEMENT

REACTIONS (1)
  - CONVULSION [None]
